FAERS Safety Report 4871960-X (Version None)
Quarter: 2005Q4

REPORT INFORMATION
  Report Type: 
  Country: None (occurrence: None)
  Receive Date: 20051230
  Receipt Date: 20051220
  Transmission Date: 20060501
  Serious: Yes (Hospitalization)
  Sender: FDA-Public Use
  Company Number: T05-USA-05144-01

PATIENT
  Age: 87 Year
  Sex: Female
  Weight: 52.6173 kg

DRUGS (14)
  1. MEMANTINE HCL [Suspect]
     Indication: DEMENTIA ALZHEIMER'S TYPE
     Dosage: 4 TABLET QD PO
     Route: 048
     Dates: start: 20050823, end: 20051108
  2. MEMANTINE HCL [Suspect]
     Indication: DEMENTIA ALZHEIMER'S TYPE
     Dosage: 4 TABLET QD PO
     Route: 048
     Dates: start: 20051122
  3. NORVASC [Concomitant]
  4. OSTEOBIFLEX [Concomitant]
  5. PRINIVIL [Concomitant]
  6. MULTI-VITAMIN [Concomitant]
  7. ASPIRIN [Concomitant]
  8. LIDODERM (LIDOCAINE) [Concomitant]
  9. ARICEPT [Concomitant]
  10. KADIAN [Concomitant]
  11. PLAVIX [Concomitant]
  12. DARVOCET [Concomitant]
  13. SYNTHROID [Concomitant]
  14. AMBIEN [Concomitant]

REACTIONS (22)
  - ANION GAP DECREASED [None]
  - BACK PAIN [None]
  - BLOOD ALBUMIN DECREASED [None]
  - BLOOD CHLORIDE INCREASED [None]
  - BLOOD GLUCOSE INCREASED [None]
  - BLOOD POTASSIUM INCREASED [None]
  - BLOOD PRESSURE DIASTOLIC INCREASED [None]
  - COLD SWEAT [None]
  - CONFUSIONAL STATE [None]
  - DROOLING [None]
  - HAEMOGLOBIN DECREASED [None]
  - HYPOTENSION [None]
  - LETHARGY [None]
  - LOSS OF CONSCIOUSNESS [None]
  - MALAISE [None]
  - MENTAL STATUS CHANGES [None]
  - PANCREATITIS [None]
  - PCO2 DECREASED [None]
  - PROTEIN TOTAL DECREASED [None]
  - RENAL FAILURE ACUTE [None]
  - UNRESPONSIVE TO VERBAL STIMULI [None]
  - URINARY TRACT INFECTION [None]
